FAERS Safety Report 9076046 (Version 1)
Quarter: 2013Q1

REPORT INFORMATION
  Report Type: Spontaneous
  Country: US (occurrence: US)
  Receive Date: 20130129
  Receipt Date: 20130129
  Transmission Date: 20140127
  Serious: Yes (Death)
  Sender: FDA-Public Use
  Company Number: CHPA2013US001707

PATIENT
  Age: 8 Year
  Sex: Female

DRUGS (2)
  1. MAALOX UNKNOWN [Suspect]
     Indication: PROPHYLAXIS
     Dosage: UNK, UNK
     Route: 048
     Dates: end: 19831207
  2. ANTIBIOTICS [Concomitant]
     Dosage: UNK, UNK

REACTIONS (2)
  - Death [Fatal]
  - Off label use [Unknown]
